FAERS Safety Report 18178916 (Version 1)
Quarter: 2020Q3

REPORT INFORMATION
  Report Type: Report from Study
  Country: KE (occurrence: KE)
  Receive Date: 20200820
  Receipt Date: 20200820
  Transmission Date: 20201103
  Serious: Yes (Other)
  Sender: FDA-Public Use
  Company Number: KE-SEATTLE GENETICS-2019SGN00855

PATIENT
  Sex: Female

DRUGS (1)
  1. BRENTUXIMAB VEDOTIN [Suspect]
     Active Substance: BRENTUXIMAB VEDOTIN
     Indication: HODGKIN^S DISEASE
     Dosage: 109.8 MILLIGRAM
     Route: 042
     Dates: start: 20190201

REACTIONS (11)
  - Lymphadenopathy [Unknown]
  - Weight decreased [Unknown]
  - Rash [Unknown]
  - Diarrhoea [Recovered/Resolved]
  - Decreased appetite [Unknown]
  - Cough [Unknown]
  - Product dose omission issue [Unknown]
  - Arthralgia [Recovered/Resolved]
  - Peripheral sensory neuropathy [Recovered/Resolved]
  - Hodgkin^s disease [Unknown]
  - Constipation [Unknown]
